FAERS Safety Report 6996219-6 (Version None)
Quarter: 2010Q3

REPORT INFORMATION
  Report Type: 
  Country: None (occurrence: None)
  Receive Date: 20100918
  Receipt Date: 20090121
  Transmission Date: 20110219
  Serious: No
  Sender: FDA-Public Use
  Company Number: US-WYE-H07535709

PATIENT
  Sex: Female
  Weight: 51.76 kg

DRUGS (1)
  1. EFFEXOR XR [Suspect]
     Indication: MAJOR DEPRESSION
     Route: 048
     Dates: start: 20060301, end: 20081224

REACTIONS (4)
  - ARTHRALGIA [None]
  - DRUG WITHDRAWAL SYNDROME [None]
  - MALAISE [None]
  - TREMOR [None]
